FAERS Safety Report 24612258 (Version 1)
Quarter: 2024Q4

REPORT INFORMATION
  Report Type: Spontaneous
  Country: US (occurrence: US)
  Receive Date: 20241113
  Receipt Date: 20241113
  Transmission Date: 20250114
  Serious: Yes (Death)
  Sender: STRIDES
  Company Number: US-STRIDES ARCOLAB LIMITED-2024SP014445

PATIENT
  Age: 60 Year
  Sex: Male

DRUGS (10)
  1. PREDNISOLONE [Suspect]
     Active Substance: PREDNISOLONE
     Indication: Metastases to meninges
     Dosage: UNK
     Route: 065
  2. PREDNISOLONE [Suspect]
     Active Substance: PREDNISOLONE
     Indication: Hormone-refractory prostate cancer
  3. APALUTAMIDE [Suspect]
     Active Substance: APALUTAMIDE
     Indication: Hormone-refractory prostate cancer
     Dosage: UNK
     Route: 065
  4. DOCETAXEL [Suspect]
     Active Substance: DOCETAXEL
     Indication: Hormone-refractory prostate cancer
     Dosage: UNK
     Route: 065
  5. ENZALUTAMIDE [Suspect]
     Active Substance: ENZALUTAMIDE
     Indication: Hormone-refractory prostate cancer
     Dosage: UNK
     Route: 065
  6. LEUPROLIDE [Suspect]
     Active Substance: LEUPROLIDE
     Indication: Hormone-refractory prostate cancer
     Dosage: UNK
     Route: 065
  7. RADIUM [Suspect]
     Active Substance: RADIUM
     Indication: Hormone-refractory prostate cancer
     Dosage: UNK
     Route: 065
  8. RUCAPARIB [Suspect]
     Active Substance: RUCAPARIB
     Indication: Hormone-refractory prostate cancer
     Dosage: UNK
     Route: 065
  9. ABIRATERONE [Suspect]
     Active Substance: ABIRATERONE\ABIRATERONE ACETATE
     Indication: Metastases to meninges
     Dosage: UNK
     Route: 065
  10. ABIRATERONE [Suspect]
     Active Substance: ABIRATERONE\ABIRATERONE ACETATE
     Indication: Hormone-refractory prostate cancer
     Dosage: UNK, DISCHARGED
     Route: 065

REACTIONS (1)
  - Drug ineffective [Fatal]
